FAERS Safety Report 8051271-4 (Version None)
Quarter: 2012Q1

REPORT INFORMATION
  Report Type: 
  Country: None (occurrence: None)
  Receive Date: 20120117
  Receipt Date: 20120112
  Transmission Date: 20120608
  Serious: Yes (Hospitalization)
  Sender: FDA-Public Use
  Company Number: US-GILEAD-2011-0048449

PATIENT
  Sex: Male

DRUGS (2)
  1. LETAIRIS [Suspect]
     Indication: PULMONARY HYPERTENSION
     Dosage: 5 MG, UNK
     Route: 048
     Dates: start: 20110830
  2. ADCIRCA [Concomitant]

REACTIONS (4)
  - RENAL ARTERY OCCLUSION [None]
  - CARDIAC FAILURE CONGESTIVE [None]
  - HAEMORRHAGE [None]
  - ATRIAL FIBRILLATION [None]
